FAERS Safety Report 4892873-3 (Version None)
Quarter: 2006Q1

REPORT INFORMATION
  Report Type: 
  Country: None (occurrence: None)
  Receive Date: 20060126
  Receipt Date: 20050714
  Transmission Date: 20060701
  Serious: Yes (Hospitalization)
  Sender: FDA-Public Use
  Company Number: US-MERCK-0507USA02095

PATIENT
  Age: 44 Year
  Sex: Male
  Weight: 98 kg

DRUGS (6)
  1. VIOXX [Suspect]
     Indication: BACK PAIN
     Route: 048
     Dates: start: 20000601, end: 20000101
  2. VIOXX [Suspect]
     Route: 048
     Dates: start: 20040401, end: 20040601
  3. VIOXX [Suspect]
     Route: 048
     Dates: start: 20000101, end: 20020501
  4. VIOXX [Suspect]
     Indication: PAIN IN EXTREMITY
     Route: 048
     Dates: start: 20000601, end: 20000101
  5. VIOXX [Suspect]
     Route: 048
     Dates: start: 20040401, end: 20040601
  6. VIOXX [Suspect]
     Route: 048
     Dates: start: 20000101, end: 20020501

REACTIONS (8)
  - BACK DISORDER [None]
  - BACK PAIN [None]
  - CARDIAC FAILURE CONGESTIVE [None]
  - CORONARY ARTERY DISEASE [None]
  - CORONARY ARTERY STENOSIS [None]
  - COUGH [None]
  - ISCHAEMIC CARDIOMYOPATHY [None]
  - MYOCARDIAL INFARCTION [None]
